FAERS Safety Report 5901217-7 (Version None)
Quarter: 2008Q3

REPORT INFORMATION
  Report Type: 
  Country: None (occurrence: None)
  Receive Date: 20080929
  Receipt Date: 20080611
  Transmission Date: 20090109
  Serious: No
  Sender: FDA-Public Use
  Company Number: US-BRISTOL-MYERS SQUIBB COMPANY-14223580

PATIENT
  Age: 20 Year
  Sex: Female
  Weight: 52 kg

DRUGS (4)
  1. ORENCIA [Suspect]
     Indication: RHEUMATOID ARTHRITIS
     Dosage: INITIAL DOSE: 2 VIALS DOSE INCREASED FROM 2 TO 3 VIALS, LATER REDUCED TO 2 VIALS.
     Route: 042
     Dates: start: 20071201
  2. PREDNISONE [Suspect]
     Dosage: LOW DOSE WAS TAKEN
  3. PLAQUENIL [Concomitant]
  4. EVOXAC [Concomitant]

REACTIONS (5)
  - AMNESIA [None]
  - DIZZINESS [None]
  - HEADACHE [None]
  - RHEUMATOID ARTHRITIS [None]
  - WEIGHT INCREASED [None]
